FAERS Safety Report 7407611-X (Version None)
Quarter: 2011Q2

REPORT INFORMATION
  Report Type: 
  Country: None (occurrence: None)
  Receive Date: 20110405
  Receipt Date: 20110328
  Transmission Date: 20111010
  Serious: Yes (Hospitalization)
  Sender: FDA-Public Use
  Company Number: DAV-AE-MTX-11-005

PATIENT
  Age: 4 Year
  Sex: Male

DRUGS (3)
  1. MORPHINE [Concomitant]
  2. PEGASPARGASE [Concomitant]
  3. METHOTREXATE [Suspect]
     Indication: ACUTE LYMPHOCYTIC LEUKAEMIA

REACTIONS (2)
  - PANCREATITIS [None]
  - GRAND MAL CONVULSION [None]
